FAERS Safety Report 23895657 (Version 1)
Quarter: 2024Q2

REPORT INFORMATION
  Report Type: Spontaneous
  Country: US (occurrence: None)
  Receive Date: 20240523
  Receipt Date: 20240523
  Transmission Date: 20240716
  Serious: Yes (Other)
  Sender: FDA-Public Use
  Company Number: None

PATIENT
  Age: 34 Year
  Sex: Male

DRUGS (7)
  1. EVEROLIMUS [Suspect]
     Active Substance: EVEROLIMUS
     Indication: Prophylaxis against transplant rejection
     Dosage: OTHER QUANTITY : 2 TABS (1 MG);?FREQUENCY : TWICE A DAY;?
     Route: 048
     Dates: start: 20240429, end: 20240515
  2. MYCOPHENOLIC ACID [Concomitant]
  3. RENA-VITE [Concomitant]
  4. ACETAMINOPHEN [Concomitant]
  5. AMLODIPINE [Concomitant]
  6. METOPROLOL [Concomitant]
  7. SODIUM BICARBONATE [Concomitant]

REACTIONS (3)
  - Therapy cessation [None]
  - Blister [None]
  - Rash [None]

NARRATIVE: CASE EVENT DATE: 20240501
